FAERS Safety Report 18623294 (Version 1)
Quarter: 2020Q4

REPORT INFORMATION
  Report Type: Report from Study
  Country: None (occurrence: US)
  Receive Date: 20201216
  Receipt Date: 20201216
  Transmission Date: 20210114
  Serious: Yes (Life-Threatening, Hospitalization)
  Sender: FDA-Public Use
  Company Number: US-ABBVIE-20P-163-3685206-00

PATIENT
  Age: 30 Year
  Sex: Female
  Weight: 79.45 kg

DRUGS (20)
  1. SAVELLA [Concomitant]
     Active Substance: MILNACIPRAN HYDROCHLORIDE
     Indication: AXIAL SPONDYLOARTHRITIS
     Route: 048
     Dates: start: 20110801
  2. SALAGEN [Concomitant]
     Active Substance: PILOCARPINE HYDROCHLORIDE
     Indication: DRY MOUTH
     Route: 048
     Dates: start: 20190301
  3. NUVIGIL [Concomitant]
     Active Substance: ARMODAFINIL
     Indication: ATTENTION DEFICIT HYPERACTIVITY DISORDER
  4. ZOFRAN ODT [Concomitant]
     Active Substance: ONDANSETRON HYDROCHLORIDE
     Indication: IRRITABLE BOWEL SYNDROME
     Dosage: PRN, TID
     Route: 060
     Dates: start: 20090201
  5. UPADACITINIB [Suspect]
     Active Substance: UPADACITINIB
     Indication: AXIAL SPONDYLOARTHRITIS
     Route: 048
     Dates: start: 20200827, end: 20201202
  6. UPADACITINIB [Suspect]
     Active Substance: UPADACITINIB
     Indication: AXIAL SPONDYLOARTHRITIS
     Route: 048
     Dates: start: 20201203, end: 20201207
  7. ROBAXIN [Concomitant]
     Active Substance: METHOCARBAMOL
     Indication: MIGRAINE
  8. ZORVOLEX [Concomitant]
     Active Substance: DICLOFENAC
     Indication: AXIAL SPONDYLOARTHRITIS
     Route: 048
     Dates: start: 20150401
  9. SINGULAIR [Concomitant]
     Active Substance: MONTELUKAST SODIUM
     Indication: SEASONAL ALLERGY
     Route: 048
     Dates: start: 20180616
  10. LEVONORGESTREL/ETHINYLESTRADIOL [Concomitant]
     Active Substance: ETHINYL ESTRADIOL\LEVONORGESTREL
     Indication: CONTRACEPTION
     Dosage: 15MG/30MCG
     Route: 048
     Dates: start: 20190901, end: 20201207
  11. MECLIZINE [Concomitant]
     Active Substance: MECLIZINE HYDROCHLORIDE
     Indication: SYNCOPE
     Dosage: PRN, BID
     Route: 048
     Dates: start: 20180301
  12. SYNTHROID [Concomitant]
     Active Substance: LEVOTHYROXINE SODIUM
     Indication: HYPOTHYROIDISM
     Route: 048
     Dates: start: 20081101
  13. GRALISE [Concomitant]
     Active Substance: GABAPENTIN
     Indication: AXIAL SPONDYLOARTHRITIS
     Route: 048
     Dates: start: 20150201
  14. LATUDA [Concomitant]
     Active Substance: LURASIDONE HYDROCHLORIDE
     Indication: ANXIETY
     Route: 048
     Dates: start: 20170213
  15. NUVIGIL [Concomitant]
     Active Substance: ARMODAFINIL
     Indication: FATIGUE
     Route: 048
     Dates: start: 20170201
  16. ROBAXIN [Concomitant]
     Active Substance: METHOCARBAMOL
     Indication: AXIAL SPONDYLOARTHRITIS
     Dosage: PRN, TID
     Route: 048
     Dates: start: 20090901
  17. LOPRESSOR [Concomitant]
     Active Substance: METOPROLOL TARTRATE
     Indication: TACHYCARDIA
     Dosage: HS
     Route: 048
     Dates: start: 20190601
  18. VITAMIN D3 [Concomitant]
     Active Substance: CHOLECALCIFEROL
     Indication: VITAMIN D DEFICIENCY
     Route: 048
     Dates: start: 20190603
  19. PREDNISONE. [Concomitant]
     Active Substance: PREDNISONE
     Indication: AXIAL SPONDYLOARTHRITIS
     Route: 048
     Dates: start: 20170201
  20. TRINTELLIX [Concomitant]
     Active Substance: VORTIOXETINE HYDROBROMIDE
     Indication: ANXIETY
     Route: 048
     Dates: start: 20180301

REACTIONS (2)
  - Pulmonary embolism [Not Recovered/Not Resolved]
  - Nausea [Not Recovered/Not Resolved]

NARRATIVE: CASE EVENT DATE: 20201207
